FAERS Safety Report 4313776-9 (Version None)
Quarter: 2004Q1

REPORT INFORMATION
  Report Type: 
  Country: None (occurrence: None)
  Receive Date: 20040305
  Receipt Date: 20040218
  Transmission Date: 20041129
  Serious: Yes (Hospitalization)
  Sender: FDA-Public Use
  Company Number: A01200400834

PATIENT
  Age: 70 Year
  Sex: Female

DRUGS (5)
  1. ARIXTRA [Suspect]
     Indication: PROPHYLAXIS
     Dosage: 2.5 MG OD SUBCUTANEOUS
     Route: 058
     Dates: start: 20031209, end: 20031213
  2. ARIXTRA [Suspect]
     Indication: THROMBOPHLEBITIS
     Dosage: 2.5 MG OD SUBCUTANEOUS
     Route: 058
     Dates: start: 20031209, end: 20031213
  3. ENALAPRIL MALEATE [Concomitant]
  4. HYDROCHLOROTHIAZIDE [Concomitant]
  5. PARACETAMOL [Concomitant]

REACTIONS (2)
  - POSTOPERATIVE INFECTION [None]
  - WOUND INFECTION [None]
